FAERS Safety Report 23777134 (Version 2)
Quarter: 2025Q2

REPORT INFORMATION
  Report Type: Spontaneous
  Country: US (occurrence: US)
  Receive Date: 20240424
  Receipt Date: 20250626
  Transmission Date: 20250717
  Serious: Yes (Hospitalization)
  Sender: SANOFI AVENTIS
  Company Number: US-SA-SAC20240419001180

PATIENT
  Age: 54 Year
  Sex: Male

DRUGS (28)
  1. REZUROCK [Suspect]
     Active Substance: BELUMOSUDIL
     Indication: Non-Hodgkin^s lymphoma
     Dosage: 200 MG, BID
     Route: 048
  2. PRASTERONE [Concomitant]
     Active Substance: PRASTERONE
  3. LYRICA [Concomitant]
     Active Substance: PREGABALIN
  4. VEMLIDY [Concomitant]
     Active Substance: TENOFOVIR ALAFENAMIDE FUMARATE
  5. QUETIAPINE [Concomitant]
     Active Substance: QUETIAPINE
  6. TIZANIDINE HYDROCHLORIDE [Concomitant]
     Active Substance: TIZANIDINE HYDROCHLORIDE
  7. PRAMIPEXOLE [Concomitant]
     Active Substance: PRAMIPEXOLE
  8. PREDNISONE [Concomitant]
     Active Substance: PREDNISONE
  9. TAMSULOSIN [Concomitant]
     Active Substance: TAMSULOSIN
  10. VITAMIN D3 [Concomitant]
     Active Substance: CHOLECALCIFEROL
  11. TACROLIMUS [Concomitant]
     Active Substance: TACROLIMUS
  12. AZITHROMYCIN [Concomitant]
     Active Substance: AZITHROMYCIN
  13. ELIQUIS [Concomitant]
     Active Substance: APIXABAN
  14. THIAMINE [Concomitant]
     Active Substance: THIAMINE
  15. METOPROLOL TARTRATE [Concomitant]
     Active Substance: METOPROLOL TARTRATE
  16. LUNESTA [Concomitant]
     Active Substance: ESZOPICLONE
  17. MIRTAZAPINE [Concomitant]
     Active Substance: MIRTAZAPINE
  18. TRELEGY ELLIPTA [Concomitant]
     Active Substance: FLUTICASONE FUROATE\UMECLIDINIUM BROMIDE\VILANTEROL TRIFENATATE
  19. BUMETANIDE [Concomitant]
     Active Substance: BUMETANIDE
  20. DOCUSATE SODIUM\SENNOSIDE A\SENNOSIDE B [Concomitant]
     Active Substance: DOCUSATE SODIUM\SENNOSIDE A\SENNOSIDE B
  21. OMEPRAZOLE [Concomitant]
     Active Substance: OMEPRAZOLE
  22. MONTELUKAST [Concomitant]
     Active Substance: MONTELUKAST
  23. INGREZZA [Concomitant]
     Active Substance: VALBENAZINE DITOSYLATE
  24. BACTRIM [Concomitant]
     Active Substance: SULFAMETHOXAZOLE\TRIMETHOPRIM
  25. ACYCLOVIR [Concomitant]
     Active Substance: ACYCLOVIR
  26. SIROLIMUS [Concomitant]
     Active Substance: SIROLIMUS
  27. SERTRALINE [Concomitant]
     Active Substance: SERTRALINE HYDROCHLORIDE
  28. FLOVENT [Concomitant]
     Active Substance: FLUTICASONE PROPIONATE

REACTIONS (5)
  - Fall [Unknown]
  - Blood sodium decreased [Recovering/Resolving]
  - Blood potassium decreased [Recovering/Resolving]
  - Inappropriate schedule of product administration [Unknown]
  - Product use in unapproved indication [Unknown]

NARRATIVE: CASE EVENT DATE: 20250620
